FAERS Safety Report 4749640-0 (Version None)
Quarter: 2005Q3

REPORT INFORMATION
  Report Type: 
  Country: None (occurrence: None)
  Receive Date: 20050819
  Receipt Date: 20050819
  Transmission Date: 20060218
  Serious: Yes (Hospitalization)
  Sender: FDA-Public Use
  Company Number: None

PATIENT
  Age: 45 Year
  Weight: 79.3795 kg

DRUGS (11)
  1. CLOPIDOGREL    600MG [Suspect]
     Indication: CATHETERISATION CARDIAC
     Dosage: 600MG
     Dates: start: 20050726, end: 20050726
  2. HEPARIN      4000 UNITS [Suspect]
     Dosage: 4000 UNITS    IV
     Route: 042
  3. PROCHLORPERAZINE MALEATE [Concomitant]
  4. BISACODYL [Concomitant]
  5. DOCUSATE NA [Concomitant]
  6. FUROSEMIDE [Concomitant]
  7. METOCLOPRAMIDE HCL [Concomitant]
  8. SENNOSIDES [Concomitant]
  9. SPIRONOLACTONE [Concomitant]
  10. OMEPRAZOLE [Concomitant]
  11. PROPRANOLOL HYDROCHLORIDE [Concomitant]

REACTIONS (6)
  - AGGRESSION [None]
  - CONFUSIONAL STATE [None]
  - HAEMATEMESIS [None]
  - MENTAL STATUS CHANGES [None]
  - UPPER GASTROINTESTINAL HAEMORRHAGE [None]
  - VARICES OESOPHAGEAL [None]
